FAERS Safety Report 23514387 (Version 1)
Quarter: 2024Q1

REPORT INFORMATION
  Report Type: Spontaneous
  Country: US (occurrence: None)
  Receive Date: 20240212
  Receipt Date: 20240212
  Transmission Date: 20240410
  Serious: Yes (Death)
  Sender: FDA-Public Use
  Company Number: None

PATIENT
  Age: 62 Year
  Sex: Male

DRUGS (1)
  1. GLEOSTINE [Suspect]
     Active Substance: LOMUSTINE
     Indication: Vomiting
     Dosage: OTHER FREQUENCY : EVERY6WEEKS;?
     Dates: start: 20240131

REACTIONS (1)
  - Death [None]
